FAERS Safety Report 22760397 (Version 3)
Quarter: 2024Q2

REPORT INFORMATION
  Report Type: Spontaneous
  Country: KR (occurrence: KR)
  Receive Date: 20230728
  Receipt Date: 20240612
  Transmission Date: 20240716
  Serious: Yes (Hospitalization, Other)
  Sender: FDA-Public Use
  Company Number: KR-BAYER-2023A086322

PATIENT
  Age: 80 Year
  Sex: Female

DRUGS (7)
  1. ANGELIQ [Suspect]
     Active Substance: DROSPIRENONE\ESTRADIOL
     Indication: Menopausal symptoms
     Dosage: UNK
     Route: 048
     Dates: start: 201006, end: 2011
  2. ANGELIQ [Suspect]
     Active Substance: DROSPIRENONE\ESTRADIOL
     Indication: Hormone replacement therapy
  3. ANGELIQ [Suspect]
     Active Substance: DROSPIRENONE\ESTRADIOL
     Indication: Osteoporosis
  4. VIVIANT [Suspect]
     Active Substance: BAZEDOXIFENE
     Indication: Dental care
     Dosage: UNK
     Dates: start: 2016
  5. VIVIANT [Suspect]
     Active Substance: BAZEDOXIFENE
     Indication: Dental care
     Dosage: UNK
     Dates: start: 202111, end: 202305
  6. COVID-19 VACCINE NOS [Suspect]
     Active Substance: COVID-19 VACCINE
     Indication: COVID-19 immunisation
     Dosage: 1 UNK
  7. BAZEDOXIFENE ACETATE [Suspect]
     Active Substance: BAZEDOXIFENE ACETATE

REACTIONS (3)
  - Endometrial cancer [None]
  - Postmenopausal haemorrhage [Unknown]
  - Endometrial hyperplasia [Unknown]

NARRATIVE: CASE EVENT DATE: 20110101
